FAERS Safety Report 4842572-9 (Version None)
Quarter: 2005Q4

REPORT INFORMATION
  Report Type: 
  Country: None (occurrence: None)
  Receive Date: 20051129
  Receipt Date: 20051122
  Transmission Date: 20060501
  Serious: Yes (Hospitalization)
  Sender: FDA-Public Use
  Company Number: 163-20785-05110027

PATIENT
  Age: 83 Year
  Sex: Female

DRUGS (7)
  1. THALOMID [Suspect]
     Indication: MULTIPLE MYELOMA
     Dosage: 100 MG QHS ORAL
     Route: 048
     Dates: start: 20030501
  2. ZOMETA [Concomitant]
  3. ADVAIR DISKUS 100/50 [Concomitant]
  4. CELEBREX [Concomitant]
  5. DECADRON [Concomitant]
  6. LASIX [Concomitant]
  7. PROTONIX [Concomitant]

REACTIONS (2)
  - ATRIAL FIBRILLATION [None]
  - DYSPNOEA [None]
